FAERS Safety Report 10221440 (Version 1)
Quarter: 2014Q1

REPORT INFORMATION
  Report Type: Spontaneous
  Country: US (occurrence: None)
  Receive Date: 20140306
  Receipt Date: 20140306
  Transmission Date: 20141002
  Serious: Yes (Other)
  Sender: FDA-Public Use
  Company Number: 163-21880-13101368

PATIENT
  Sex: 0

DRUGS (3)
  1. REVLIMID ( LENALIDOMIDE) (CAPSULES) [Suspect]
     Indication: PRODUCT USED FOR UNKNOWN INDICATION
     Route: 048
  2. VELCADE ( BORTEZOMIB) (UNKNOWN) [Concomitant]
  3. DEXAMETHASONE ( DEXAMETHASONE) (UNKNOWN) [Concomitant]

REACTIONS (1)
  - Diarrhoea [None]
